FAERS Safety Report 5705928-8 (Version None)
Quarter: 2008Q2

REPORT INFORMATION
  Report Type: 
  Country: None (occurrence: None)
  Receive Date: 20080415
  Receipt Date: 20080407
  Transmission Date: 20081010
  Serious: Yes (Hospitalization)
  Sender: FDA-Public Use
  Company Number: FR-AVENTIS-200811295FR

PATIENT
  Age: 76 Year
  Sex: Female

DRUGS (6)
  1. FLAGYL [Suspect]
     Indication: SIGMOIDITIS
     Route: 048
     Dates: start: 20070720, end: 20070809
  2. AUGMENTIN '125' [Suspect]
     Indication: SIGMOIDITIS
     Route: 048
     Dates: start: 20070720, end: 20070809
  3. ZOCOR [Concomitant]
     Indication: HYPERTENSION
     Route: 048
  4. ADALAT [Concomitant]
     Route: 048
  5. ALDACTONE [Concomitant]
     Indication: HYPERTENSION
     Route: 048
  6. NEURONTIN [Concomitant]
     Indication: SUBDURAL HAEMATOMA
     Route: 048
     Dates: start: 20070301

REACTIONS (3)
  - ATAXIA [None]
  - DYSARTHRIA [None]
  - PSYCHOMOTOR SKILLS IMPAIRED [None]
